FAERS Safety Report 6084565-2 (Version None)
Quarter: 2009Q1

REPORT INFORMATION
  Report Type: 
  Country: None (occurrence: None)
  Receive Date: 20090219
  Receipt Date: 20090212
  Transmission Date: 20090719
  Serious: Yes (Other)
  Sender: FDA-Public Use
  Company Number: CI-GILEAD-2009-0020316

PATIENT
  Sex: Female
  Weight: 53 kg

DRUGS (9)
  1. TRUVADA [Suspect]
     Indication: HIV INFECTION
     Dates: start: 20081008, end: 20081014
  2. TRUVADA [Suspect]
     Dates: start: 20081007, end: 20081007
  3. AZT [Concomitant]
     Indication: ANTIVIRAL PROPHYLAXIS
     Dates: start: 20080727, end: 20081007
  4. NEVIRAPINE [Concomitant]
     Indication: ANTIVIRAL PROPHYLAXIS
     Dates: start: 20081007, end: 20081007
  5. FEFOL [Concomitant]
     Dates: start: 20080727
  6. MULTI-VITAMINS [Concomitant]
     Dates: start: 20080727
  7. 10% GLUCOSE DRIP [Concomitant]
     Dates: start: 20081007, end: 20081007
  8. SYNTOCINON [Concomitant]
     Dates: start: 20081007, end: 20081007
  9. AMOXICILLIN [Concomitant]
     Dates: start: 20081007, end: 20081016

REACTIONS (1)
  - NEUTROPENIA [None]
